FAERS Safety Report 5171662-9 (Version None)
Quarter: 2006Q4

REPORT INFORMATION
  Report Type: 
  Country: None (occurrence: None)
  Receive Date: 20061205
  Receipt Date: 20061120
  Transmission Date: 20070319
  Serious: Yes (Other)
  Sender: FDA-Public Use
  Company Number: 2006144193

PATIENT
  Age: 58 Year
  Sex: Female
  Weight: 113.8529 kg

DRUGS (4)
  1. CEREBYX [Suspect]
     Dosage: 1000 MG, INTRAVENOUS
     Route: 042
     Dates: start: 20061120, end: 20061120
  2. ALBUTEROL SULFATE/IPRATROPIUM BROMIDE (IPRATROPIUM BROMIDE, SALBUTAMOL [Concomitant]
  3. INSULIN, REGULAR (INSULIN) [Concomitant]
  4. ADVAIR DISKUS 100/50 [Concomitant]

REACTIONS (6)
  - FORMICATION [None]
  - PRURITUS [None]
  - RED BLOOD CELL COUNT DECREASED [None]
  - RENAL FUNCTION TEST ABNORMAL [None]
  - THROMBOSIS [None]
  - WHITE BLOOD CELL COUNT INCREASED [None]
